FAERS Safety Report 21034454 (Version 9)
Quarter: 2022Q4

REPORT INFORMATION
  Report Type: Other
  Country: IT (occurrence: None)
  Receive Date: 20220701
  Receipt Date: 20221019
  Transmission Date: 20230112
  Serious: Yes (Other)
  Sender: FDA-Public Use
  Company Number: IT-ROCHE-3124436

PATIENT
  Age: 71 Year
  Sex: Female

DRUGS (13)
  1. ATEZOLIZUMAB [Suspect]
     Active Substance: ATEZOLIZUMAB
     Indication: Small cell lung cancer
     Dosage: DATE LAST DOSE: 15/JUN/2022, RECEIVED 1200 MG
     Route: 041
     Dates: start: 20220427, end: 20220706
  2. CARBOPLATIN [Suspect]
     Active Substance: CARBOPLATIN
     Indication: Small cell lung cancer
     Dosage: DATE LAST DOSE: 15/JUN/2022, 3 MG/AUC - RECEIVED 300 MG
     Route: 065
     Dates: start: 20220427, end: 20220706
  3. ETOPOSIDE [Suspect]
     Active Substance: ETOPOSIDE
     Indication: Small cell lung cancer
     Dosage: DATE LAST DOSE: 15/JUN/2022, 100 MG/MQ - RECEIVED 182 MG (REDUCED BY 71%)
     Route: 065
     Dates: start: 20220427, end: 20220706
  4. ALBUTEROL [Concomitant]
     Active Substance: ALBUTEROL
  5. LANSOPRAZOLE [Concomitant]
     Active Substance: LANSOPRAZOLE
     Route: 048
  6. CRESTOR [Concomitant]
     Active Substance: ROSUVASTATIN CALCIUM
  7. FUROSEMIDE\SPIRONOLACTONE [Concomitant]
     Active Substance: FUROSEMIDE\SPIRONOLACTONE
  8. CARVEDILOL [Concomitant]
     Active Substance: CARVEDILOL
  9. DEXAMETHASONE [Concomitant]
     Active Substance: DEXAMETHASONE
     Route: 048
  10. ROSUVASTATIN [Concomitant]
     Active Substance: ROSUVASTATIN
  11. CARVEDILOL [Concomitant]
     Active Substance: CARVEDILOL
     Dosage: 2 CP
     Route: 048
  12. LEVOTIRSOL [Concomitant]
  13. FLUIMUCIL A [Concomitant]

REACTIONS (16)
  - Asthenia [Not Recovered/Not Resolved]
  - Cough [Not Recovered/Not Resolved]
  - Neutropenia [Recovered/Resolved]
  - Platelet count decreased [Not Recovered/Not Resolved]
  - Urinary tract infection [Recovered/Resolved]
  - Hyponatraemia [Recovered/Resolved]
  - Oedema [Not Recovered/Not Resolved]
  - Anaemia [Not Recovered/Not Resolved]
  - Haematoma [Not Recovered/Not Resolved]
  - Constipation [Recovered/Resolved]
  - Hypothyroidism [Not Recovered/Not Resolved]
  - Aspartate aminotransferase increased [Recovered/Resolved]
  - Alanine aminotransferase increased [Recovered/Resolved]
  - Anaemia [Recovered/Resolved]
  - Platelet count decreased [Recovered/Resolved]
  - Cancer pain [Recovered/Resolved]

NARRATIVE: CASE EVENT DATE: 20220506
